FAERS Safety Report 15392707 (Version 1)
Quarter: 2018Q3

REPORT INFORMATION
  Report Type: Spontaneous
  Country: BR (occurrence: BR)
  Receive Date: 20180917
  Receipt Date: 20180917
  Transmission Date: 20181010
  Serious: Yes (Other)
  Sender: FDA-Public Use
  Company Number: BR-VIRTUS PHARMACEUTICALS, LLC-2018VTS00111

PATIENT
  Age: 19 Year
  Sex: Male

DRUGS (2)
  1. UNSPECIFIED MULTIBACILLARY MULTIDRUG THERAPY [Concomitant]
     Indication: LEPROSY
     Route: 065
  2. DAPSONE. [Suspect]
     Active Substance: DAPSONE
     Indication: LEPROSY
     Dosage: UNK
     Route: 065

REACTIONS (1)
  - Drug reaction with eosinophilia and systemic symptoms [Recovering/Resolving]
